FAERS Safety Report 26125517 (Version 1)
Quarter: 2025Q4

REPORT INFORMATION
  Report Type: Spontaneous
  Country: EU (occurrence: EU)
  Receive Date: 20251205
  Receipt Date: 20251205
  Transmission Date: 20260117
  Serious: Yes (Hospitalization, Other)
  Sender: ASTELLAS
  Company Number: EU-ASTELLAS-2025-AER-066815

PATIENT
  Sex: Female

DRUGS (4)
  1. TACROLIMUS [Suspect]
     Active Substance: TACROLIMUS
     Indication: Renal transplant
     Dosage: 0.05 MG/KG PE DAY
     Route: 065
  2. TACROLIMUS [Suspect]
     Active Substance: TACROLIMUS
     Dosage: REDUCED WITH A TARGET TROUGH LEVEL OF 5 NG/ML
     Route: 065
  3. AZATHIOPRINE [Concomitant]
     Active Substance: AZATHIOPRINE
     Indication: Renal transplant
     Dosage: 2.4 MG/KG PER DAY
     Route: 065
  4. AZATHIOPRINE [Concomitant]
     Active Substance: AZATHIOPRINE
     Dosage: REDUCED
     Route: 065

REACTIONS (5)
  - Sepsis [Recovering/Resolving]
  - Microembolism [Recovering/Resolving]
  - Ascites [Recovering/Resolving]
  - Ileus paralytic [Recovering/Resolving]
  - Urinary retention [Recovered/Resolved]
